FAERS Safety Report 18781038 (Version 1)
Quarter: 2021Q1

REPORT INFORMATION
  Report Type: Spontaneous
  Country: US (occurrence: US)
  Receive Date: 20210124
  Receipt Date: 20210124
  Transmission Date: 20210419
  Serious: Yes (Death, Life-Threatening, Hospitalization)
  Sender: FDA-Public Use
  Company Number: None

PATIENT
  Age: 79 Year
  Sex: Male
  Weight: 275 kg

DRUGS (1)
  1. WARFARIN (WARFARIN NA (EXELAN) 7.5MG TAB) [Suspect]
     Active Substance: WARFARIN SODIUM
     Indication: STENT PLACEMENT
     Route: 048
     Dates: start: 20060420, end: 20200825

REACTIONS (1)
  - Gastric haemorrhage [None]

NARRATIVE: CASE EVENT DATE: 20200825
